FAERS Safety Report 7702480 (Version 2)
Quarter: 2013Q1

REPORT INFORMATION
  Report Type: Spontaneous
  Country: US (occurrence: US)
  Receive Date: 20101209
  Receipt Date: 20130314
  Transmission Date: 20140127
  Serious: Yes (Hospitalization)
  Sender: FDA-Public Use
  Company Number: US-RANBAXY-2010US-39813

PATIENT
  Age: 25 Year
  Sex: Male

DRUGS (2)
  1. CLINDAMYCIN [Suspect]
     Indication: PERITONSILLAR ABSCESS
     Dosage: UNK
     Route: 065
  2. METHYLYPREDNISOLONE [Concomitant]
     Indication: PRODUCT USED FOR UNKNOWN INDICATION
     Dosage: UNK
     Route: 065

REACTIONS (1)
  - Drug reaction with eosinophilia and systemic symptoms [Recovered/Resolved]
